FAERS Safety Report 8979180 (Version 2)
Quarter: 2012Q4

REPORT INFORMATION
  Report Type: 
  Country: IT (occurrence: IT)
  Receive Date: 20121221
  Receipt Date: 20121226
  Transmission Date: 20130627
  Serious: Yes (Death)
  Sender: FDA-Public Use
  Company Number: IT-PFIZER INC-2012322459

PATIENT
  Age: 80 Year
  Sex: Female

DRUGS (3)
  1. SUTENT [Suspect]
     Indication: RENAL CELL CARCINOMA
     Dosage: UNK
     Route: 048
     Dates: start: 20080801, end: 20090101
  2. ZOMETA [Suspect]
     Indication: RENAL CELL CARCINOMA
     Dosage: 4 mg, monthly
     Route: 042
     Dates: start: 20080801, end: 20081201
  3. ZOMETA [Suspect]
     Dosage: UNK
     Route: 042
     Dates: start: 20090301, end: 20100301

REACTIONS (1)
  - Osteonecrosis of jaw [Fatal]
